FAERS Safety Report 19399336 (Version 1)
Quarter: 2021Q2

REPORT INFORMATION
  Report Type: Report from Study
  Country: ES (occurrence: ES)
  Receive Date: 20210610
  Receipt Date: 20210610
  Transmission Date: 20210717
  Serious: Yes (Other)
  Sender: FDA-Public Use
  Company Number: ES-MYLANLABS-2021M1033381

PATIENT
  Sex: Female

DRUGS (4)
  1. LEVETIRACETAM. [Suspect]
     Active Substance: LEVETIRACETAM
     Indication: GENERALISED TONIC-CLONIC SEIZURE
     Dosage: 1000 MILLIGRAM, QD
     Route: 065
  2. LACOSAMIDE. [Suspect]
     Active Substance: LACOSAMIDE
     Indication: IDIOPATHIC GENERALISED EPILEPSY
  3. LEVETIRACETAM. [Suspect]
     Active Substance: LEVETIRACETAM
     Indication: IDIOPATHIC GENERALISED EPILEPSY
     Dosage: 3000 MILLIGRAM, QD
     Route: 065
  4. LACOSAMIDE. [Suspect]
     Active Substance: LACOSAMIDE
     Indication: GENERALISED TONIC-CLONIC SEIZURE
     Dosage: UNK
     Route: 065

REACTIONS (2)
  - Off label use [Unknown]
  - Drug ineffective for unapproved indication [Unknown]
